FAERS Safety Report 20301551 (Version 1)
Quarter: 2022Q1

REPORT INFORMATION
  Report Type: Spontaneous
  Country: JP (occurrence: JP)
  Receive Date: 20220105
  Receipt Date: 20220105
  Transmission Date: 20220423
  Serious: Yes (Other)
  Sender: FDA-Public Use
  Company Number: JP-PFIZER INC-202101865154

PATIENT
  Age: 76 Year

DRUGS (1)
  1. PACLITAXEL [Suspect]
     Active Substance: PACLITAXEL
     Dosage: UNK

REACTIONS (4)
  - Subacute cutaneous lupus erythematosus [Unknown]
  - Flushing [Unknown]
  - Skin exfoliation [Unknown]
  - Erythema [Unknown]
